FAERS Safety Report 25516971 (Version 2)
Quarter: 2025Q3

REPORT INFORMATION
  Report Type: Spontaneous
  Country: US (occurrence: US)
  Receive Date: 20250704
  Receipt Date: 20250923
  Transmission Date: 20251021
  Serious: No
  Sender: BIOGEN
  Company Number: US-BIOGEN-2025BI01314962

PATIENT
  Sex: Male

DRUGS (1)
  1. SKYCLARYS [Suspect]
     Active Substance: OMAVELOXOLONE
     Indication: Friedreich^s ataxia
     Dosage: 150 MG DAILY
     Route: 050
     Dates: start: 20230703, end: 202509

REACTIONS (7)
  - Musculoskeletal disorder [Unknown]
  - Muscular weakness [Unknown]
  - Asthenia [Unknown]
  - Blood cholesterol increased [Unknown]
  - Urinary incontinence [Unknown]
  - Anal incontinence [Unknown]
  - Mobility decreased [Unknown]
